FAERS Safety Report 8814568 (Version 2)
Quarter: 2013Q3

REPORT INFORMATION
  Report Type: Spontaneous
  Country: US (occurrence: None)
  Receive Date: 20120925
  Receipt Date: 20130815
  Transmission Date: 20140515
  Serious: Yes (Hospitalization, Other)
  Sender: FDA-Public Use
  Company Number: ADR-2012-01740

PATIENT
  Sex: Male

DRUGS (5)
  1. LIORESAL [Suspect]
     Indication: PAIN
  2. LIORESAL [Suspect]
     Indication: BACK PAIN
  3. FENTANYL [Concomitant]
  4. HYDROMORPHONE [Concomitant]
  5. CLONIDINE [Concomitant]

REACTIONS (5)
  - Oedema peripheral [None]
  - Pain [None]
  - Erythema [None]
  - Feeling hot [None]
  - Muscle spasticity [None]
